FAERS Safety Report 10623076 (Version 3)
Quarter: 2015Q3

REPORT INFORMATION
  Report Type: Spontaneous
  Country: US (occurrence: US)
  Receive Date: 20141203
  Receipt Date: 20150818
  Transmission Date: 20151125
  Serious: No
  Sender: FDA-Public Use
  Company Number: US-GILEAD-2014-0125277

PATIENT
  Age: 48 Year
  Sex: Female

DRUGS (3)
  1. ADCIRCA [Concomitant]
     Active Substance: TADALAFIL
  2. LETAIRIS [Suspect]
     Active Substance: AMBRISENTAN
     Indication: PRODUCT USED FOR UNKNOWN INDICATION
     Dosage: 10 MG, UNK
     Route: 065
     Dates: start: 20110408
  3. AMIKACIN [Concomitant]
     Active Substance: AMIKACIN

REACTIONS (5)
  - General physical condition abnormal [Unknown]
  - Urinary tract infection [Unknown]
  - Back pain [Unknown]
  - Pain [Unknown]
  - Muscular weakness [Unknown]
